FAERS Safety Report 6194999-3 (Version None)
Quarter: 2009Q2

REPORT INFORMATION
  Report Type: 
  Country: None (occurrence: None)
  Receive Date: 20090519
  Receipt Date: 20090514
  Transmission Date: 20091009
  Serious: Yes (Life-Threatening, Hospitalization)
  Sender: FDA-Public Use
  Company Number: A0784633A

PATIENT
  Sex: Female
  Weight: 50 kg

DRUGS (3)
  1. SERETIDE [Suspect]
     Dosage: 1PUFF TWICE PER DAY
     Route: 055
     Dates: start: 20050101
  2. BEROTEC [Concomitant]
  3. CLARITHROMYCIN [Concomitant]

REACTIONS (3)
  - ASTHMATIC CRISIS [None]
  - COMA [None]
  - RESPIRATORY FAILURE [None]
